FAERS Safety Report 17543179 (Version 2)
Quarter: 2020Q1

REPORT INFORMATION
  Report Type: Report from Study
  Country: None (occurrence: CA)
  Receive Date: 20200316
  Receipt Date: 20200318
  Transmission Date: 20200409
  Serious: Yes (Other)
  Sender: FDA-Public Use
  Company Number: CA-ABBVIE-20K-028-3318786-00

PATIENT
  Sex: Female

DRUGS (1)
  1. HUMIRA [Suspect]
     Active Substance: ADALIMUMAB
     Indication: PSORIATIC ARTHROPATHY
     Route: 058
     Dates: start: 20160110

REACTIONS (5)
  - Pain in extremity [Not Recovered/Not Resolved]
  - Implantation complication [Not Recovered/Not Resolved]
  - Mobility decreased [Not Recovered/Not Resolved]
  - Sciatic nerve neuropathy [Not Recovered/Not Resolved]
  - Drug level decreased [Not Recovered/Not Resolved]
